FAERS Safety Report 10430327 (Version 1)
Quarter: 2014Q3

REPORT INFORMATION
  Report Type: Spontaneous
  Country: FR (occurrence: FR)
  Receive Date: 20140904
  Receipt Date: 20140904
  Transmission Date: 20150326
  Serious: Yes (Hospitalization, Other)
  Sender: FDA-Public Use
  Company Number: FR-ASTRAZENECA-2014SE65069

PATIENT
  Age: 60 Year
  Sex: Male
  Weight: 84 kg

DRUGS (14)
  1. RAPAMUNE [Concomitant]
     Active Substance: SIROLIMUS
     Route: 048
  2. FEROGRAD VITAMIN C [Concomitant]
     Route: 048
  3. INEXIUM [Concomitant]
     Active Substance: ESOMEPRAZOLE
     Route: 048
  4. AUGMENTIN [Concomitant]
     Active Substance: AMOXICILLIN\CLAVULANATE POTASSIUM
     Indication: BRONCHOPNEUMONIA
     Dates: start: 201402, end: 201402
  5. BRICANYL [Concomitant]
     Active Substance: TERBUTALINE SULFATE
     Route: 055
  6. UNFRACTIONATED HEPARIN [Suspect]
     Active Substance: HEPARIN SODIUM
     Route: 065
     Dates: end: 201402
  7. SOLUPRED [Concomitant]
     Active Substance: PREDNISOLONE
     Route: 048
  8. BISOPROLOL [Concomitant]
     Active Substance: BISOPROLOL
     Route: 048
  9. BRILIQUE [Suspect]
     Active Substance: TICAGRELOR
     Route: 048
     Dates: end: 201402
  10. TAHOR [Concomitant]
     Active Substance: ATORVASTATIN CALCIUM
     Route: 048
  11. KALEORID [Concomitant]
     Active Substance: POTASSIUM CHLORIDE
     Route: 048
  12. KARDEGIC [Suspect]
     Active Substance: ASPIRIN LYSINE
     Route: 065
  13. TRIATEC [Concomitant]
     Active Substance: RAMIPRIL
     Route: 048
  14. TAVANIC [Concomitant]
     Active Substance: LEVOFLOXACIN
     Indication: BRONCHOPNEUMONIA
     Dates: start: 201402, end: 201402

REACTIONS (8)
  - Melaena [Recovered/Resolved]
  - Atelectasis [Unknown]
  - Haemorrhagic diathesis [Recovered/Resolved]
  - Epistaxis [Recovered/Resolved]
  - Adenocarcinoma of colon [Unknown]
  - Bronchopneumonia [Unknown]
  - Haematemesis [Recovered/Resolved]
  - Haematuria [Recovered/Resolved]

NARRATIVE: CASE EVENT DATE: 201402
